FAERS Safety Report 8850572 (Version 1)
Quarter: 2012Q4

REPORT INFORMATION
  Report Type: 
  Country: DE (occurrence: DE)
  Receive Date: 20121019
  Receipt Date: 20121019
  Transmission Date: 20130627
  Serious: Yes (Other)
  Sender: FDA-Public Use
  Company Number: DE-NAPPMUNDI-DEU-2012-0009543

PATIENT
  Sex: Female

DRUGS (1)
  1. OXYGESIC [Suspect]
     Indication: POSTOPERATIVE ANALGESIA
     Dosage: 5 mg, UNK
     Route: 048
     Dates: start: 201203

REACTIONS (5)
  - Oedema peripheral [Not Recovered/Not Resolved]
  - Heat oedema [Not Recovered/Not Resolved]
  - Gastrointestinal hypomotility [Unknown]
  - Nausea [Unknown]
  - Joint swelling [None]
